FAERS Safety Report 15075657 (Version 5)
Quarter: 2019Q1

REPORT INFORMATION
  Report Type: Spontaneous
  Country: US (occurrence: US)
  Receive Date: 20180627
  Receipt Date: 20190107
  Transmission Date: 20190417
  Serious: Yes (Other)
  Sender: FDA-Public Use
  Company Number: US-SA-2018SA165392

PATIENT
  Age: 68 Year
  Sex: Female
  Weight: 48.93 kg

DRUGS (1)
  1. DUPIXENT [Suspect]
     Active Substance: DUPILUMAB
     Indication: DERMATITIS ATOPIC
     Dosage: 300 MG, QOW
     Route: 058
     Dates: start: 20180222

REACTIONS (8)
  - Eye pruritus [Not Recovered/Not Resolved]
  - Injection site haemorrhage [Unknown]
  - Pruritus generalised [Unknown]
  - Condition aggravated [Unknown]
  - Dry eye [Unknown]
  - Haemorrhage [Unknown]
  - Eye pain [Recovered/Resolved]
  - Cataract [Unknown]

NARRATIVE: CASE EVENT DATE: 20180615
